FAERS Safety Report 8240121-9 (Version None)
Quarter: 2012Q1

REPORT INFORMATION
  Report Type: 
  Country: None (occurrence: None)
  Receive Date: 20120328
  Receipt Date: 20120319
  Transmission Date: 20120608
  Serious: Yes (Other)
  Sender: FDA-Public Use
  Company Number: US-NAPPMUNDI-USA-2003-0005094

PATIENT
  Age: 45 Year
  Sex: Male
  Weight: 83.9 kg

DRUGS (2)
  1. OXYCONTIN [Suspect]
     Indication: BACK INJURY
     Dosage: UNK
     Route: 065
  2. HEROIN [Suspect]
     Indication: DRUG ABUSE
     Dosage: UNK
     Route: 065

REACTIONS (2)
  - DRUG DEPENDENCE [None]
  - SUBSTANCE ABUSE [None]
